FAERS Safety Report 8866126 (Version 1)
Quarter: 2012Q4

REPORT INFORMATION
  Report Type: 
  Country: GB (occurrence: GB)
  Receive Date: 20121025
  Receipt Date: 20121025
  Transmission Date: 20130627
  Serious: Yes (Other)
  Sender: FDA-Public Use
  Company Number: GB-PFIZER INC-2012260150

PATIENT
  Age: 32 Year
  Sex: Male
  Weight: 94 kg

DRUGS (1)
  1. DOXYCYCLINE MONOHYDRATE [Suspect]
     Indication: PROSTATITIS
     Dosage: 100 mg, 2x/day
     Route: 048
     Dates: start: 20120612

REACTIONS (4)
  - Anxiety [Not Recovered/Not Resolved]
  - Paranoia [Not Recovered/Not Resolved]
  - Panic attack [Not Recovered/Not Resolved]
  - Flashback [Not Recovered/Not Resolved]
